FAERS Safety Report 7687430-X (Version None)
Quarter: 2011Q3

REPORT INFORMATION
  Report Type: 
  Country: None (occurrence: None)
  Receive Date: 20110816
  Receipt Date: 20110802
  Transmission Date: 20111222
  Serious: Yes (Other)
  Sender: FDA-Public Use
  Company Number: PHEH2011US00549

PATIENT
  Sex: Male

DRUGS (2)
  1. BLOOD PRESSURE MEDICATION [Suspect]
  2. DIOVAN [Suspect]

REACTIONS (1)
  - HEARING IMPAIRED [None]
